FAERS Safety Report 9297015 (Version 1)
Quarter: 2013Q2

REPORT INFORMATION
  Report Type: Spontaneous
  Country: CH (occurrence: CH)
  Receive Date: 20130518
  Receipt Date: 20130518
  Transmission Date: 20140414
  Serious: Yes (Other)
  Sender: FDA-Public Use
  Company Number: PHHY2013CH048141

PATIENT
  Sex: Female

DRUGS (1)
  1. DIOVAN [Suspect]
     Dosage: 1 DF, BID

REACTIONS (8)
  - Suicidal ideation [Unknown]
  - Ear pain [Unknown]
  - Neck pain [Unknown]
  - Toothache [Unknown]
  - Dark circles under eyes [Unknown]
  - Bone pain [Unknown]
  - Headache [Unknown]
  - Asthenia [Unknown]
